FAERS Safety Report 6968422-2 (Version None)
Quarter: 2010Q3

REPORT INFORMATION
  Report Type: 
  Country: None (occurrence: None)
  Receive Date: 20100903
  Receipt Date: 20100903
  Transmission Date: 20110219
  Serious: Yes (Hospitalization)
  Sender: FDA-Public Use
  Company Number: None

PATIENT
  Age: 67 Year
  Sex: Female
  Weight: 66.2 kg

DRUGS (1)
  1. VANCOMYCIN [Suspect]

REACTIONS (4)
  - DERMATITIS BULLOUS [None]
  - PROCEDURAL SITE REACTION [None]
  - PYREXIA [None]
  - SKIN EXFOLIATION [None]
